FAERS Safety Report 11986876 (Version 1)
Quarter: 2016Q1

REPORT INFORMATION
  Report Type: Spontaneous
  Country: US (occurrence: US)
  Receive Date: 20160202
  Receipt Date: 20160202
  Transmission Date: 20160526
  Serious: No
  Sender: FDA-Public Use
  Company Number: US-UCBSA-2015002474

PATIENT
  Age: 22 Year
  Sex: Male
  Weight: 102.4 kg

DRUGS (2)
  1. KEPPRA [Suspect]
     Active Substance: LEVETIRACETAM
     Dosage: 1000 MG QAM AND 1750 MG QPM
     Dates: start: 201501
  2. KEPPRA [Suspect]
     Active Substance: LEVETIRACETAM
     Indication: SEIZURE
     Dosage: 750 MG QAM AND 1750 QPM, 2X/DAY (BID)
     Route: 048
     Dates: start: 201311

REACTIONS (4)
  - Rash [Recovering/Resolving]
  - Seizure [Recovered/Resolved]
  - Petit mal epilepsy [Recovered/Resolved]
  - Drug dose omission [Unknown]

NARRATIVE: CASE EVENT DATE: 201412
